FAERS Safety Report 19047408 (Version 1)
Quarter: 2021Q1

REPORT INFORMATION
  Report Type: Spontaneous
  Country: US (occurrence: US)
  Receive Date: 20210323
  Receipt Date: 20210323
  Transmission Date: 20210420
  Serious: No
  Sender: FDA-Public Use
  Company Number: US-TOLMAR, INC.-21US025837

PATIENT
  Sex: Male

DRUGS (3)
  1. ELIGARD [Suspect]
     Active Substance: LEUPROLIDE ACETATE
     Dosage: 45 MG, ONCE EVERY YEAR AND A HALF
     Route: 065
  2. ELIGARD [Suspect]
     Active Substance: LEUPROLIDE ACETATE
     Indication: PRODUCT USED FOR UNKNOWN INDICATION
     Dosage: 45 MG, ONCE EVERY YEAR AND A HALF
     Route: 065
     Dates: start: 2011
  3. ELIGARD [Suspect]
     Active Substance: LEUPROLIDE ACETATE
     Dosage: 45 MG, ONCE EVERY YEAR AND A HALF
     Route: 065
     Dates: start: 20210302

REACTIONS (8)
  - Needle issue [Unknown]
  - Syringe issue [Unknown]
  - Product administration error [Unknown]
  - Injection site pain [Unknown]
  - Injection site mass [Unknown]
  - Product colour issue [Unknown]
  - Inappropriate schedule of product administration [Unknown]
  - Prostatic specific antigen increased [Unknown]

NARRATIVE: CASE EVENT DATE: 2011
